FAERS Safety Report 19951140 (Version 1)
Quarter: 2021Q4

REPORT INFORMATION
  Report Type: Spontaneous
  Country: US (occurrence: US)
  Receive Date: 20211013
  Receipt Date: 20211013
  Transmission Date: 20220303
  Serious: Yes (Hospitalization)
  Sender: FDA-Public Use
  Company Number: US-ORG100016242-2021000544

PATIENT
  Age: 86 Year
  Sex: Female
  Weight: 49.9 kg

DRUGS (2)
  1. EXPAREL [Suspect]
     Active Substance: BUPIVACAINE
     Dosage: MIXED WITH 30 CC 0.25% MARCAINE
     Route: 050
     Dates: start: 20211005, end: 20211005
  2. MARCAINE [Suspect]
     Active Substance: BUPIVACAINE HYDROCHLORIDE
     Dosage: ADMIXED WITH 30 ML OF EXPAREL
     Route: 050
     Dates: start: 20211005, end: 20211005

REACTIONS (2)
  - Overdose [Not Recovered/Not Resolved]
  - No adverse event [Unknown]

NARRATIVE: CASE EVENT DATE: 20211005
